FAERS Safety Report 8737704 (Version 2)
Quarter: 2013Q4

REPORT INFORMATION
  Report Type: Report from Study
  Country: JP (occurrence: JP)
  Receive Date: 20120822
  Receipt Date: 20131106
  Transmission Date: 20140711
  Serious: Yes (Hospitalization, Other)
  Sender: FDA-Public Use
  Company Number: JP-009507513-1208JPN007229

PATIENT
  Age: 63 Year
  Sex: Female
  Weight: 50 kg

DRUGS (15)
  1. PEGINTRON [Suspect]
     Indication: HEPATITIS C
     Dosage: 80MCG/WEEK
     Route: 058
     Dates: start: 20120409
  2. REBETOL [Suspect]
     Indication: HEPATITIS C
     Dosage: 600 MG, ONCE
     Route: 048
     Dates: start: 20120409, end: 20120513
  3. REBETOL [Suspect]
     Indication: HEPATITIS C
     Dosage: 400 MG, ONCE
     Route: 048
     Dates: start: 20120514, end: 20120520
  4. REBETOL [Suspect]
     Route: 048
     Dates: start: 20120521
  5. TELAVIC [Suspect]
     Indication: HEPATITIS C
     Dosage: 2250 MG, ONCE
     Route: 048
     Dates: start: 20120409, end: 20120527
  6. TELAVIC [Suspect]
     Route: 048
     Dates: start: 20120528, end: 20120603
  7. TELAVIC [Suspect]
     Route: 048
     Dates: start: 20120604
  8. URSO [Concomitant]
     Indication: HEPATITIS C
     Dosage: 600 MG, ONCE
     Route: 048
  9. LOXONIN [Concomitant]
     Indication: PROPHYLAXIS
     Dosage: 90 MG, ONCE
     Route: 048
     Dates: start: 20120409
  10. LOXONIN [Concomitant]
     Dosage: 60MG/DAY, AS NEEDED.
     Route: 048
  11. VOLTAREN [Concomitant]
     Indication: PROPHYLAXIS
     Dosage: 25 MG, ONCE
     Route: 054
     Dates: start: 20120409, end: 20120409
  12. SELBEX [Concomitant]
     Indication: PROPHYLAXIS
     Dosage: 150 MG, ONCE
     Route: 048
     Dates: start: 20120409
  13. PARIET [Concomitant]
     Indication: PROPHYLAXIS
     Dosage: 1 DF, ONCE
     Route: 048
     Dates: start: 20120418
  14. MYSLEE [Concomitant]
     Indication: INSOMNIA
     Dosage: 1TAB/DAY, AS NEEDED.
     Route: 048
     Dates: start: 20120420, end: 20120501
  15. BONALON [Concomitant]
     Indication: PROPHYLAXIS
     Dosage: 35MG/WEEK
     Route: 048
     Dates: start: 20120424

REACTIONS (2)
  - Drug eruption [Recovering/Resolving]
  - Haemoglobin decreased [Not Recovered/Not Resolved]
